FAERS Safety Report 23215814 (Version 2)
Quarter: 2023Q4

REPORT INFORMATION
  Report Type: Report from Study
  Country: AU (occurrence: AU)
  Receive Date: 20231122
  Receipt Date: 20231212
  Transmission Date: 20240109
  Serious: Yes (Other)
  Sender: FDA-Public Use
  Company Number: AU-002147023-NVSC2023AU238256

PATIENT
  Sex: Male

DRUGS (1)
  1. KESIMPTA [Suspect]
     Active Substance: OFATUMUMAB
     Indication: Relapsing-remitting multiple sclerosis
     Dosage: 20 MG, QMO
     Route: 058
     Dates: start: 20231103

REACTIONS (13)
  - Tunnel vision [Unknown]
  - Balance disorder [Unknown]
  - Limb discomfort [Unknown]
  - Influenza [Unknown]
  - Chills [Unknown]
  - Muscle twitching [Unknown]
  - Muscle spasms [Unknown]
  - Nasal congestion [Unknown]
  - Urinary tract infection [Unknown]
  - Terminal insomnia [Unknown]
  - Nocturia [Unknown]
  - Mental fatigue [Unknown]
  - Injection site erythema [Unknown]
